FAERS Safety Report 5961580-8 (Version None)
Quarter: 2008Q4

REPORT INFORMATION
  Report Type: 
  Country: None (occurrence: None)
  Receive Date: 20081121
  Receipt Date: 20081117
  Transmission Date: 20090506
  Serious: Yes (Other)
  Sender: FDA-Public Use
  Company Number: B0547215A

PATIENT
  Age: 2 Year
  Sex: Male
  Weight: 14 kg

DRUGS (5)
  1. AUGMENTIN '125' [Suspect]
     Indication: TONSILLITIS
     Dosage: 9ML PER DAY
     Route: 048
     Dates: start: 20080915, end: 20080921
  2. ZYRTEC [Concomitant]
  3. IBUPROFEN TABLETS [Concomitant]
  4. HEXETIDINE [Concomitant]
  5. UNKNOWN DRUG [Concomitant]

REACTIONS (1)
  - HENOCH-SCHONLEIN PURPURA [None]
